FAERS Safety Report 4321013-4 (Version None)
Quarter: 2004Q1

REPORT INFORMATION
  Report Type: 
  Country: None (occurrence: None)
  Receive Date: 20040322
  Receipt Date: 20040322
  Transmission Date: 20041129
  Serious: Yes (Hospitalization)
  Sender: FDA-Public Use
  Company Number: None

PATIENT
  Age: 54 Year
  Sex: Male

DRUGS (1)
  1. IBUPROFEN [Suspect]

REACTIONS (5)
  - DIZZINESS [None]
  - HAEMATOCHEZIA [None]
  - MELAENA [None]
  - SINUS TACHYCARDIA [None]
  - UPPER GASTROINTESTINAL HAEMORRHAGE [None]
